FAERS Safety Report 10760901 (Version 1)
Quarter: 2015Q1

REPORT INFORMATION
  Report Type: Spontaneous
  Country: US (occurrence: None)
  Receive Date: 20150202
  Receipt Date: 20150202
  Transmission Date: 20150721
  Serious: Yes (Other)
  Sender: FDA-Public Use
  Company Number: 2015VER00008

PATIENT
  Age: 45 Year
  Sex: Female
  Weight: 90 kg

DRUGS (2)
  1. ABSORICA [Suspect]
     Active Substance: ISOTRETINOIN
     Indication: ACNE
     Dates: start: 20140626
  2. MYORISAN [Suspect]
     Active Substance: ISOTRETINOIN
     Indication: ACNE
     Route: 048
     Dates: start: 20141201, end: 20150102

REACTIONS (5)
  - Mood swings [None]
  - Alopecia [None]
  - Dry eye [None]
  - Dry skin [None]
  - Lip dry [None]

NARRATIVE: CASE EVENT DATE: 201407
